FAERS Safety Report 24027128 (Version 1)
Quarter: 2024Q2

REPORT INFORMATION
  Report Type: Spontaneous
  Country: US (occurrence: US)
  Receive Date: 20240628
  Receipt Date: 20240628
  Transmission Date: 20240716
  Serious: No
  Sender: FDA-Public Use
  Company Number: US-ROCHE-10000008087

PATIENT
  Sex: Male

DRUGS (1)
  1. ACTEMRA [Suspect]
     Active Substance: TOCILIZUMAB
     Indication: Product used for unknown indication
     Dosage: SELF INJECTS
     Route: 065

REACTIONS (4)
  - Dementia Alzheimer^s type [Unknown]
  - Pain in extremity [Not Recovered/Not Resolved]
  - Weight bearing difficulty [Unknown]
  - Ill-defined disorder [Not Recovered/Not Resolved]
